FAERS Safety Report 4281453-9 (Version None)
Quarter: 2004Q1

REPORT INFORMATION
  Report Type: 
  Country: None (occurrence: None)
  Receive Date: 20040120
  Receipt Date: 20031114
  Transmission Date: 20041129
  Serious: No
  Sender: FDA-Public Use
  Company Number: 2003-11-1401

PATIENT
  Sex: Female

DRUGS (1)
  1. CLARINEX [Suspect]

REACTIONS (3)
  - FEELING JITTERY [None]
  - NERVOUSNESS [None]
  - TREMOR [None]
